FAERS Safety Report 6536534-3 (Version None)
Quarter: 2010Q1

REPORT INFORMATION
  Report Type: 
  Country: None (occurrence: None)
  Receive Date: 20100113
  Receipt Date: 20100104
  Transmission Date: 20100710
  Serious: No
  Sender: FDA-Public Use
  Company Number: US-B.I. PHARMACEUTICALS,INC./RIDGEFIELD-2010-BP-00020BP

PATIENT
  Age: 4 Year
  Sex: Male

DRUGS (1)
  1. MIRAPEX [Suspect]
     Indication: RESTLESS LEGS SYNDROME
     Route: 048
     Dates: start: 20091201

REACTIONS (6)
  - DECREASED EYE CONTACT [None]
  - DIARRHOEA [None]
  - FAECAL INCONTINENCE [None]
  - SEDATION [None]
  - SOMNOLENCE [None]
  - URINARY INCONTINENCE [None]
